FAERS Safety Report 8240258-4 (Version None)
Quarter: 2012Q1

REPORT INFORMATION
  Report Type: 
  Country: None (occurrence: None)
  Receive Date: 20120328
  Receipt Date: 20120319
  Transmission Date: 20120608
  Serious: Yes (Death, Other)
  Sender: FDA-Public Use
  Company Number: FI-ELI_LILLY_AND_COMPANY-FI201112005359

PATIENT
  Sex: Male

DRUGS (12)
  1. PREDNISOLONE [Concomitant]
     Indication: IMMUNOSUPPRESSION
     Dosage: 5 MG, QD
  2. RAMIPRIL [Concomitant]
     Indication: VASODILATION PROCEDURE
  3. ACETAMINOPHEN [Concomitant]
     Indication: PAIN
  4. AZATHIOPRINE [Concomitant]
     Indication: AUTOIMMUNE HEPATITIS
  5. PANTOPRAZOLE [Concomitant]
     Indication: GASTRIC DISORDER
     Dosage: 40 MG, QD
  6. ZOLPIDEM TARTRATE [Concomitant]
     Indication: SLEEP DISORDER
     Dosage: 10 MG, UNK
  7. CALCIUM CARBONATE [Concomitant]
     Indication: VITAMIN SUPPLEMENTATION
     Dosage: UNK
  8. FORTEO [Suspect]
     Indication: OSTEOPOROSIS
     Dosage: 20 UG, QD
     Route: 058
  9. INSULIN [Concomitant]
     Indication: DIABETES MELLITUS
  10. CRAMPITON [Concomitant]
     Indication: MUSCLE SPASMS
  11. CORTISONE ACETATE [Concomitant]
     Indication: PULMONARY FIBROSIS
  12. XALATAN [Concomitant]
     Indication: GLAUCOMA

REACTIONS (6)
  - LOSS OF CONSCIOUSNESS [None]
  - DEATH [None]
  - MYELODYSPLASTIC SYNDROME [None]
  - MYELOFIBROSIS [None]
  - PULMONARY FIBROSIS [None]
  - THROMBOCYTOPENIA [None]
